FAERS Safety Report 20836821 (Version 1)
Quarter: 2022Q2

REPORT INFORMATION
  Report Type: Spontaneous
  Country: ZM (occurrence: ZM)
  Receive Date: 20220517
  Receipt Date: 20220517
  Transmission Date: 20220720
  Serious: Yes (Other)
  Sender: FDA-Public Use
  Company Number: ZM-ALKEM LABORATORIES LIMITED-ZM-ALKEM-2022-04414

PATIENT
  Age: 40 Year
  Sex: Female

DRUGS (6)
  1. ISONIAZID [Suspect]
     Active Substance: ISONIAZID
     Indication: Tuberculosis
     Dosage: 300 MILLIGRAM
     Route: 065
  2. PYRIDOXINE [Suspect]
     Active Substance: PYRIDOXINE
     Indication: Product used for unknown indication
     Dosage: 50 MILLIGRAM FOR THREE MONTHS
     Route: 065
  3. PYRIDOXINE [Suspect]
     Active Substance: PYRIDOXINE
     Dosage: 50 MILLIGRAM TWICE A DAY FOR 12 WEEKS
     Route: 065
  4. LAMIVUDINE [Concomitant]
     Active Substance: LAMIVUDINE
     Indication: HIV test positive
     Dosage: UNK
     Route: 065
  5. TENOFOVIR [Concomitant]
     Active Substance: TENOFOVIR
     Indication: HIV test positive
     Dosage: UNK
     Route: 065
  6. EFAVIRENZ [Concomitant]
     Active Substance: EFAVIRENZ
     Indication: HIV test positive
     Dosage: UNK
     Route: 065

REACTIONS (5)
  - Dementia [Unknown]
  - Skin hyperpigmentation [Recovering/Resolving]
  - Skin fissures [Recovering/Resolving]
  - Nicotinic acid deficiency [Unknown]
  - Dermatitis [Recovering/Resolving]
